FAERS Safety Report 21035685 (Version 1)
Quarter: 2022Q3

REPORT INFORMATION
  Report Type: Spontaneous
  Country: US (occurrence: US)
  Receive Date: 20220701
  Receipt Date: 20220701
  Transmission Date: 20221027
  Serious: No
  Sender: FDA-Public Use
  Company Number: US-009507513-2206USA007880

PATIENT
  Age: 43 Year
  Sex: Male

DRUGS (3)
  1. MOLNUPIRAVIR [Suspect]
     Active Substance: MOLNUPIRAVIR
     Dosage: 2 OUT OF THE 4 PILLS AT NIGHT
     Route: 048
     Dates: start: 20220622, end: 20220622
  2. MOLNUPIRAVIR [Suspect]
     Active Substance: MOLNUPIRAVIR
     Dosage: 2 OUT OF THE 4 PILLS
     Route: 048
     Dates: start: 20220623, end: 20220623
  3. MOLNUPIRAVIR [Suspect]
     Active Substance: MOLNUPIRAVIR
     Dosage: 2 PILLS AND ABOUT AN HOUR LATER I TOOK THE OTHER TWO
     Route: 048
     Dates: start: 20220624

REACTIONS (3)
  - Incorrect dose administered [Unknown]
  - Product use issue [Unknown]
  - No adverse event [Unknown]

NARRATIVE: CASE EVENT DATE: 20220622
